FAERS Safety Report 15067815 (Version 1)
Quarter: 2018Q2

REPORT INFORMATION
  Report Type: Spontaneous
  Country: US (occurrence: US)
  Receive Date: 20180626
  Receipt Date: 20180626
  Transmission Date: 20180711
  Serious: Yes (Other)
  Sender: FDA-Public Use
  Company Number: US-SA-2017SA260855

PATIENT
  Age: 68 Year
  Sex: Female
  Weight: 73.48 kg

DRUGS (12)
  1. TAXOL [Concomitant]
     Active Substance: PACLITAXEL
  2. TAXOTERE [Suspect]
     Active Substance: DOCETAXEL
     Dosage: UNK UNK,QCY
     Route: 042
     Dates: start: 20131227, end: 20131227
  3. CYTOXAN [Concomitant]
     Active Substance: CYCLOPHOSPHAMIDE
  4. TAXOTERE [Suspect]
     Active Substance: DOCETAXEL
     Indication: BREAST CANCER
     Dosage: UNK UNK,QCY
     Route: 042
     Dates: start: 20131205, end: 20131205
  5. CYCLOPHOSPHAMIDE. [Concomitant]
     Active Substance: CYCLOPHOSPHAMIDE
  6. HERCEPTIN [Concomitant]
     Active Substance: TRASTUZUMAB
  7. DOXORUBICIN [Concomitant]
     Active Substance: DOXORUBICIN
     Dosage: 130 MG
     Route: 042
     Dates: start: 20131205, end: 20131205
  8. CLONIDINE. [Concomitant]
     Active Substance: CLONIDINE
     Dosage: UNK
     Dates: start: 1982
  9. AMLODIPINE [Concomitant]
     Active Substance: AMLODIPINE BESYLATE
     Dosage: UNK
     Dates: start: 1982
  10. DOXORUBICIN [Concomitant]
     Active Substance: DOXORUBICIN
     Dosage: 130 MG, Q3W
     Route: 042
     Dates: start: 20131227, end: 20131227
  11. DILTIAZEM. [Concomitant]
     Active Substance: DILTIAZEM
     Dosage: UNK UNK, UNK
     Dates: start: 1982
  12. ADRIAMYCIN [DOXORUBICIN] [Concomitant]

REACTIONS (2)
  - Psychological trauma [Unknown]
  - Alopecia [Recovering/Resolving]

NARRATIVE: CASE EVENT DATE: 201312
